FAERS Safety Report 23133029 (Version 3)
Quarter: 2023Q4

REPORT INFORMATION
  Report Type: Spontaneous
  Country: FR (occurrence: FR)
  Receive Date: 20231101
  Receipt Date: 20231116
  Transmission Date: 20240109
  Serious: Yes (Other)
  Sender: FDA-Public Use
  Company Number: FR-Merz Pharmaceuticals GmbH-23-03400

PATIENT
  Age: 50 Year
  Sex: Female

DRUGS (9)
  1. XEOMIN [Suspect]
     Active Substance: INCOBOTULINUMTOXINA
     Indication: Bruxism
     Route: 030
     Dates: start: 20230907, end: 20230907
  2. XEOMIN [Suspect]
     Active Substance: INCOBOTULINUMTOXINA
     Route: 030
     Dates: start: 20230907, end: 20230907
  3. XEOMIN [Suspect]
     Active Substance: INCOBOTULINUMTOXINA
     Route: 030
     Dates: start: 20230323, end: 20230323
  4. XEOMIN [Suspect]
     Active Substance: INCOBOTULINUMTOXINA
     Route: 030
     Dates: start: 20230323, end: 20230323
  5. XEOMIN [Suspect]
     Active Substance: INCOBOTULINUMTOXINA
  6. BOTULINUM TOXIN NOS [Concomitant]
     Active Substance: BOTULINUM TOXIN NOS
     Indication: Bruxism
  7. EFFEXOR [Concomitant]
     Active Substance: VENLAFAXINE HYDROCHLORIDE
     Dosage: 187.5 MG
  8. XANAX [Concomitant]
     Active Substance: ALPRAZOLAM
  9. BILASTINE [Concomitant]
     Active Substance: BILASTINE

REACTIONS (2)
  - Injection site cellulitis [Recovered/Resolved]
  - Off label use [Unknown]

NARRATIVE: CASE EVENT DATE: 20230907
